FAERS Safety Report 4551651-5 (Version None)
Quarter: 2005Q1

REPORT INFORMATION
  Report Type: 
  Country: None (occurrence: None)
  Receive Date: 20050112
  Receipt Date: 20050111
  Transmission Date: 20050727
  Serious: Yes (Death, Hospitalization)
  Sender: FDA-Public Use
  Company Number: US-SHR-03-001054

PATIENT
  Age: 49 Year
  Sex: Female

DRUGS (4)
  1. BETASERON [Suspect]
     Indication: MULTIPLE SCLEROSIS
     Dosage: 8 MIU, EVERY 2D, SUBCUTANEOUS
     Route: 058
     Dates: start: 20020601
  2. NEURONTIN [Concomitant]
  3. DETROL LA /USA/ (TOLTERODINE) [Concomitant]
  4. TRAZODONE (TRAZODONE) [Concomitant]

REACTIONS (1)
  - MYOCARDIAL INFARCTION [None]
